FAERS Safety Report 9406389 (Version 1)
Quarter: 2013Q3

REPORT INFORMATION
  Report Type: Spontaneous
  Country: FR (occurrence: FR)
  Receive Date: 20130718
  Receipt Date: 20130718
  Transmission Date: 20140515
  Serious: Yes (Hospitalization)
  Sender: FDA-Public Use
  Company Number: FR-ROCHE-1249999

PATIENT
  Age: 63 Year
  Sex: Female

DRUGS (8)
  1. COPEGUS [Suspect]
     Indication: HEPATITIS C
     Route: 048
     Dates: start: 201302, end: 20130325
  2. PEGASYS [Suspect]
     Indication: HEPATITIS C
     Route: 058
     Dates: start: 201302, end: 20130325
  3. INCIVO [Suspect]
     Indication: HEPATITIS C
     Route: 048
     Dates: start: 201302, end: 20130325
  4. GLUCOPHAGE [Concomitant]
     Route: 048
  5. AVLOCARDYL [Concomitant]
     Indication: HYPERTENSION
     Route: 048
  6. FORTZAAR [Concomitant]
     Indication: HYPERTENSION
     Dosage: DAILY
     Route: 048
  7. LANTUS [Concomitant]
     Indication: TYPE 2 DIABETES MELLITUS
     Route: 058
  8. NOVORAPID [Concomitant]
     Indication: TYPE 2 DIABETES MELLITUS
     Route: 058
     Dates: end: 20130325

REACTIONS (4)
  - Anaemia [Recovered/Resolved]
  - Weight decreased [Recovered/Resolved]
  - Vomiting [Recovered/Resolved]
  - Renal failure [Recovered/Resolved]
